FAERS Safety Report 6140970-7 (Version None)
Quarter: 2009Q2

REPORT INFORMATION
  Report Type: 
  Country: None (occurrence: None)
  Receive Date: 20090401
  Receipt Date: 20090401
  Transmission Date: 20091009
  Serious: Yes (Hospitalization)
  Sender: FDA-Public Use
  Company Number: None

PATIENT
  Age: 60 Year
  Sex: Male
  Weight: 88.9 kg

DRUGS (2)
  1. CLOPIDOGREL [Suspect]
     Indication: STENT PLACEMENT
     Dosage: 75 MG EVERY DAY PO
     Route: 048
     Dates: start: 20030625, end: 20090204
  2. ASPIRIN [Suspect]
     Indication: STENT PLACEMENT
     Dosage: 325 MG EVERY DAY PO
     Route: 048
     Dates: start: 20050101, end: 20090204

REACTIONS (6)
  - CHEST PAIN [None]
  - COLONIC POLYP [None]
  - DIVERTICULUM INTESTINAL [None]
  - HAEMOGLOBIN DECREASED [None]
  - HAEMORRHOIDS [None]
  - LOWER GASTROINTESTINAL HAEMORRHAGE [None]
